FAERS Safety Report 15695844 (Version 1)
Quarter: 2018Q4

REPORT INFORMATION
  Report Type: Spontaneous
  Country: US (occurrence: US)
  Receive Date: 20181126
  Receipt Date: 20181126
  Transmission Date: 20190205
  Serious: No
  Sender: FDA-Public Use
  Company Number: None

PATIENT
  Age: 64 Year
  Sex: Male

DRUGS (15)
  1. DEXMEDETOMIDINE (NARRATIVE) [Suspect]
     Active Substance: DEXMEDETOMIDINE
     Indication: SEDATION
     Dosage: ?          OTHER DOSE:0.2-0.9 UG/KG/HR;?
     Route: 042
     Dates: start: 20180910, end: 20180911
  2. ACETAMINOPEHN [Concomitant]
     Active Substance: ACETAMINOPHEN
  3. CHLORHEXADINE [Concomitant]
     Active Substance: CHLORHEXIDINE
  4. HEPARIN [Concomitant]
     Active Substance: HEPARIN SODIUM
  5. CEFEPIME [Concomitant]
     Active Substance: CEFEPIME HYDROCHLORIDE
  6. FAMOTIDINE. [Concomitant]
     Active Substance: FAMOTIDINE
  7. VANCOMYCIN [Concomitant]
     Active Substance: VANCOMYCIN
  8. DEXTROSE 5% [Concomitant]
     Active Substance: DEXTROSE
  9. FLUCONAZOLE. [Concomitant]
     Active Substance: FLUCONAZOLE
  10. METRONIDAZOLE. [Concomitant]
     Active Substance: METRONIDAZOLE
  11. POTASSIUM CHLORIDE. [Concomitant]
     Active Substance: POTASSIUM CHLORIDE
  12. LIDOCAINE. [Concomitant]
     Active Substance: LIDOCAINE
  13. FENTANYL. [Concomitant]
     Active Substance: FENTANYL
  14. FUROSEMIDE. [Concomitant]
     Active Substance: FUROSEMIDE
  15. HYDROCORTISONE. [Concomitant]
     Active Substance: HYDROCORTISONE

REACTIONS (1)
  - Pyrexia [None]

NARRATIVE: CASE EVENT DATE: 20180911
